FAERS Safety Report 15144383 (Version 1)
Quarter: 2018Q3

REPORT INFORMATION
  Report Type: Spontaneous
  Country: US (occurrence: US)
  Receive Date: 20180713
  Receipt Date: 20180713
  Transmission Date: 20181010
  Serious: No
  Sender: FDA-Public Use
  Company Number: US-NOVOPROD-598493

PATIENT
  Age: 34 Year
  Sex: Male

DRUGS (1)
  1. FIASP 3ML PDS290 [Suspect]
     Active Substance: INSULIN ASPART
     Indication: TYPE 1 DIABETES MELLITUS
     Dosage: 50 U, QD
     Route: 058
     Dates: start: 20180309

REACTIONS (4)
  - Off label use [Not Recovered/Not Resolved]
  - Infusion site pain [Recovered/Resolved]
  - Product preparation error [Unknown]
  - Infusion site mass [Recovering/Resolving]

NARRATIVE: CASE EVENT DATE: 201803
